FAERS Safety Report 25984654 (Version 1)
Quarter: 2025Q4

REPORT INFORMATION
  Report Type: Spontaneous
  Country: EU (occurrence: EU)
  Receive Date: 20251031
  Receipt Date: 20251031
  Transmission Date: 20260118
  Serious: Yes (Life-Threatening)
  Sender: TEVA
  Company Number: None

PATIENT
  Age: 52 Year
  Sex: Male
  Weight: 107 kg

DRUGS (3)
  1. DEXAMETHASONE [Suspect]
     Active Substance: DEXAMETHASONE
     Indication: Product used for unknown indication
     Dosage: BRAND NAME NOT SPECIFIED
     Route: 065
  2. ALENDRONIC ACID [Suspect]
     Active Substance: ALENDRONIC ACID
     Indication: Product used for unknown indication
     Dosage: 1 PIECE ONCE A WEEK; BRAND NAME NOT SPECIFIED
     Route: 048
     Dates: start: 20250912
  3. ORENCIA [Suspect]
     Active Substance: ABATACEPT
     Indication: Rheumatic disorder
     Dosage: 1X PER WEEK; INJVLST 125MG/ML WWSP 1ML
     Route: 065
     Dates: start: 20250828

REACTIONS (2)
  - Loss of consciousness [Recovering/Resolving]
  - Withdrawal syndrome [Unknown]
